FAERS Safety Report 24416785 (Version 1)
Quarter: 2024Q4

REPORT INFORMATION
  Report Type: Report from Study
  Country: US (occurrence: US)
  Receive Date: 20241009
  Receipt Date: 20241009
  Transmission Date: 20250114
  Serious: Yes (Other)
  Sender: GILEAD
  Company Number: US-GILEAD-2024-0690339

PATIENT
  Age: 54 Year
  Sex: Male

DRUGS (1)
  1. AXICABTAGENE CILOLEUCEL [Suspect]
     Active Substance: AXICABTAGENE CILOLEUCEL
     Indication: Non-Hodgkin^s lymphoma
     Route: 042

REACTIONS (1)
  - Lung neoplasm malignant [Unknown]
